FAERS Safety Report 6108997-9 (Version None)
Quarter: 2009Q1

REPORT INFORMATION
  Report Type: 
  Country: None (occurrence: None)
  Receive Date: 20090310
  Receipt Date: 20090224
  Transmission Date: 20090719
  Serious: Yes (Other)
  Sender: FDA-Public Use
  Company Number: US-ELI_LILLY_AND_COMPANY-US200902006877

PATIENT
  Sex: Male
  Weight: 71.655 kg

DRUGS (12)
  1. FORTEO [Suspect]
     Indication: OSTEOPOROSIS
     Dosage: 20 UG, DAILY (1/D)
     Route: 058
     Dates: start: 20031204, end: 20051201
  2. ASACOL [Concomitant]
  3. IBUPROFEN [Concomitant]
  4. SPIRIVA [Concomitant]
  5. THEOPHYLLINE [Concomitant]
  6. LEVOTHYROXINE SODIUM [Concomitant]
  7. CULTURELLE [Concomitant]
  8. PRAVASTATIN [Concomitant]
  9. WARFARIN SODIUM [Concomitant]
  10. ZOCOR [Concomitant]
  11. FLOMAX [Concomitant]
  12. BONIVA [Concomitant]
     Indication: OSTEOPOROSIS
     Dosage: 150 MG, UNK
     Route: 048
     Dates: start: 20051202

REACTIONS (5)
  - BONE DENSITY DECREASED [None]
  - COLITIS [None]
  - COLON CANCER [None]
  - PULMONARY THROMBOSIS [None]
  - THROMBOSIS [None]
